FAERS Safety Report 15112170 (Version 2)
Quarter: 2023Q2

REPORT INFORMATION
  Report Type: Spontaneous
  Country: US (occurrence: US)
  Receive Date: 20180705
  Receipt Date: 20230613
  Transmission Date: 20230721
  Serious: Yes (Other)
  Sender: FDA-Public Use
  Company Number: US-TEVA-2018-US-918913

PATIENT
  Age: 78 Year
  Sex: Male

DRUGS (10)
  1. ETHAMBUTOL [Suspect]
     Active Substance: ETHAMBUTOL HYDROCHLORIDE
     Indication: Balanoposthitis
     Route: 065
  2. ETHAMBUTOL [Suspect]
     Active Substance: ETHAMBUTOL HYDROCHLORIDE
     Indication: Granulomatous lymphadenitis
  3. ISONIAZID [Suspect]
     Active Substance: ISONIAZID
     Indication: Balanoposthitis
     Dosage: RECEIVED FOR ONE MONTH AS A MONO-THERAPY AND THEN FIVE MONTHS WITH ETHAMBUTOL, RIFAMPICIN AND PYR...
     Route: 065
  4. ISONIAZID [Suspect]
     Active Substance: ISONIAZID
     Indication: Granulomatous lymphadenitis
  5. RIFAMPIN [Suspect]
     Active Substance: RIFAMPIN
     Indication: Balanoposthitis
     Route: 065
  6. RIFAMPIN [Suspect]
     Active Substance: RIFAMPIN
     Indication: Granulomatous lymphadenitis
  7. BCG VACCINE [Suspect]
     Active Substance: BCG VACCINE
     Indication: Transitional cell carcinoma
     Route: 043
  8. PYRIDOXINE [Concomitant]
     Active Substance: PYRIDOXINE
     Indication: Granulomatous lymphadenitis
     Route: 065
  9. PYRIDOXINE [Concomitant]
     Active Substance: PYRIDOXINE
     Indication: Balanoposthitis
  10. INTERFERON [Concomitant]
     Active Substance: INTERFERON
     Indication: Transitional cell carcinoma
     Route: 043

REACTIONS (4)
  - Granuloma [Recovered/Resolved]
  - Balanoposthitis [Recovered/Resolved]
  - Granulomatous lymphadenitis [Recovered/Resolved]
  - Neuropathy peripheral [Unknown]
